FAERS Safety Report 25012088 (Version 1)
Quarter: 2025Q1

REPORT INFORMATION
  Report Type: Spontaneous
  Country: US (occurrence: US)
  Receive Date: 20250226
  Receipt Date: 20250226
  Transmission Date: 20250409
  Serious: Yes (Hospitalization, Other)
  Sender: BAXTER
  Company Number: US-BAXTER-2022BAX010409

PATIENT
  Age: 72 Year
  Sex: Female

DRUGS (1)
  1. HEPARIN SODIUM [Suspect]
     Active Substance: HEPARIN SODIUM
     Route: 065

REACTIONS (4)
  - Bloody peritoneal effluent [Unknown]
  - Peritoneal effluent abnormal [Unknown]
  - Heparin-induced thrombocytopenia [Unknown]
  - Device occlusion [Unknown]

NARRATIVE: CASE EVENT DATE: 20220513
